FAERS Safety Report 7935763-1 (Version None)
Quarter: 2011Q4

REPORT INFORMATION
  Report Type: 
  Country: None (occurrence: None)
  Receive Date: 20111123
  Receipt Date: 20111110
  Transmission Date: 20120403
  Serious: Yes (Hospitalization, Other)
  Sender: FDA-Public Use
  Company Number: US-ELI_LILLY_AND_COMPANY-US201108006821

PATIENT
  Sex: Female

DRUGS (28)
  1. FORTEO [Suspect]
     Dosage: 20 UG, QD
     Dates: end: 20111018
  2. SIMVASTATIN [Concomitant]
  3. PRENATAL VITAMINS                  /01549301/ [Concomitant]
  4. SENNA [Concomitant]
  5. FUROSEMIDE [Concomitant]
  6. TACROLIMUS [Concomitant]
  7. VITAMIN B-12 [Concomitant]
  8. MULTIVITAMIN [Concomitant]
  9. ASPIRIN [Concomitant]
  10. ADVAIR DISKUS 100/50 [Concomitant]
  11. SINGULAIR [Concomitant]
  12. PREDNISONE TAB [Concomitant]
  13. COUMADIN [Concomitant]
  14. MYFORTIC [Concomitant]
  15. SYNTHROID [Concomitant]
  16. OMEPRAZOLE [Concomitant]
  17. CRANBERRY [Concomitant]
  18. MAGNESIUM [Concomitant]
  19. WARFARIN SODIUM [Concomitant]
  20. CALCIUM CITRATE [Concomitant]
  21. IRON [Concomitant]
  22. XOPENEX [Concomitant]
  23. VITAMIN D [Concomitant]
  24. FORTEO [Suspect]
     Dosage: 20 UG, QD
  25. CALCITRIOL [Concomitant]
  26. FORTEO [Suspect]
     Indication: OSTEOPOROSIS
     Dosage: 20 UG, QD
  27. PANGESTYME [Concomitant]
  28. AMBIEN [Concomitant]
     Indication: SLEEP DISORDER

REACTIONS (10)
  - ESCHERICHIA URINARY TRACT INFECTION [None]
  - COUGH [None]
  - FALL [None]
  - PAIN IN EXTREMITY [None]
  - UPPER LIMB FRACTURE [None]
  - DIZZINESS [None]
  - BLOOD CREATININE INCREASED [None]
  - OSTEONECROSIS [None]
  - ESCHERICHIA BACTERAEMIA [None]
  - WRIST FRACTURE [None]
